FAERS Safety Report 15436583 (Version 3)
Quarter: 2018Q4

REPORT INFORMATION
  Report Type: Report from Study
  Country: LT (occurrence: LT)
  Receive Date: 20180927
  Receipt Date: 20181206
  Transmission Date: 20190204
  Serious: Yes (Death, Hospitalization)
  Sender: FDA-Public Use
  Company Number: LT-PFIZER INC-2018385250

PATIENT
  Age: 68 Year
  Sex: Male
  Weight: 60 kg

DRUGS (12)
  1. DINUTUXIMAB [Suspect]
     Active Substance: DINUTUXIMAB
     Indication: SMALL CELL LUNG CANCER
     Dosage: UNK, CYCLE 1
     Route: 041
     Dates: start: 20180711, end: 20180711
  2. IRINOTECAN HCL [Suspect]
     Active Substance: IRINOTECAN HYDROCHLORIDE
     Dosage: 612.5 MG, TOTAL DAILY DOSE, CYCLE 3
     Route: 041
     Dates: start: 20180822, end: 20180912
  3. IRINOTECAN HCL [Suspect]
     Active Substance: IRINOTECAN HYDROCHLORIDE
     Indication: SMALL CELL LUNG CANCER
     Dosage: UNK, CYCLE 1
     Route: 041
     Dates: start: 20180711, end: 20180711
  4. DINUTUXIMAB [Suspect]
     Active Substance: DINUTUXIMAB
     Dosage: 30.62 MG, TOTAL DAILY DOSE, CYCLE 3
     Route: 041
     Dates: start: 20180823, end: 20180912
  5. CLEMASTIN [Concomitant]
     Active Substance: CLEMASTINE
     Indication: PREMEDICATION
     Dosage: UNK
     Dates: start: 20180711, end: 20180823
  6. ATROPIN [ATROPINE] [Concomitant]
     Indication: PREMEDICATION
     Dosage: UNK
     Dates: start: 20180711, end: 20180823
  7. PARACETAMOL [Concomitant]
     Active Substance: ACETAMINOPHEN
     Indication: PREMEDICATION
     Dosage: UNK
     Dates: start: 20180711, end: 20180823
  8. ONDANSETRON [Concomitant]
     Active Substance: ONDANSETRON
     Indication: PREMEDICATION
     Dosage: UNK
     Dates: start: 20180711, end: 20180823
  9. IBUPROFEN. [Concomitant]
     Active Substance: IBUPROFEN
     Dosage: UNK
     Dates: start: 20180719
  10. AMITRIPTYLINE [Concomitant]
     Active Substance: AMITRIPTYLINE
     Dosage: UNK
     Dates: start: 20180802, end: 20180924
  11. FENTANYL. [Concomitant]
     Active Substance: FENTANYL
     Dosage: UNK
     Dates: start: 20180711, end: 20180924
  12. TRAMADOL. [Concomitant]
     Active Substance: TRAMADOL
     Dosage: UNK
     Dates: start: 20180420, end: 20180824

REACTIONS (2)
  - Neurological decompensation [Fatal]
  - Hypokalaemia [Not Recovered/Not Resolved]

NARRATIVE: CASE EVENT DATE: 20180912
